FAERS Safety Report 5223854-8 (Version None)
Quarter: 2007Q1

REPORT INFORMATION
  Report Type: 
  Country: None (occurrence: None)
  Receive Date: 20070130
  Receipt Date: 20070124
  Transmission Date: 20070707
  Serious: Yes (Death, Life-Threatening, Hospitalization)
  Sender: FDA-Public Use
  Company Number: PHRM2006FR02307

PATIENT
  Age: 26 Year
  Sex: Female
  Weight: 55 kg

DRUGS (7)
  1. CYCLOSPORINE [Suspect]
     Indication: BONE MARROW TRANSPLANT
     Dosage: UNK, UNK
     Route: 042
     Dates: start: 20031016
  2. CYCLOSPORINE [Suspect]
     Dosage: 110 MG/D WITHIN 6 HOURS
     Route: 042
     Dates: start: 20031023
  3. METHOTREXATE [Suspect]
     Dates: start: 20031023
  4. CATHETERIZATION [Suspect]
     Indication: BONE MARROW TRANSPLANT
     Dates: start: 20031008
  5. ENDOXAN [Suspect]
     Dates: start: 20031010, end: 20031011
  6. RADIOTHERAPY [Suspect]
     Dates: start: 20031014, end: 20031015
  7. ANTILYMPHOCYTE SERUM [Suspect]
     Dates: start: 20031008, end: 20031010

REACTIONS (28)
  - ACUTE RESPIRATORY DISTRESS SYNDROME [None]
  - BLOOD PRESSURE IMMEASURABLE [None]
  - BLOOD PRESSURE SYSTOLIC DECREASED [None]
  - BONE MARROW FAILURE [None]
  - C-REACTIVE PROTEIN INCREASED [None]
  - CARDIAC ARREST [None]
  - CARDIAC MASSAGE [None]
  - CARDIOMEGALY [None]
  - CATHETER RELATED INFECTION [None]
  - CHEST X-RAY ABNORMAL [None]
  - COMPUTERISED TOMOGRAM ABNORMAL [None]
  - CYANOSIS [None]
  - DIALYSIS [None]
  - DYSPNOEA [None]
  - HAEMOGLOBIN DECREASED [None]
  - INTUBATION [None]
  - LIVEDO RETICULARIS [None]
  - METABOLIC ACIDOSIS [None]
  - NAUSEA [None]
  - NOSOCOMIAL INFECTION [None]
  - OXYGEN SUPPLEMENTATION [None]
  - PYREXIA [None]
  - SEPTIC SHOCK [None]
  - SOMNOLENCE [None]
  - STAPHYLOCOCCAL INFECTION [None]
  - STREPTOCOCCAL INFECTION [None]
  - TACHYCARDIA [None]
  - VOMITING [None]
